FAERS Safety Report 7371486-8 (Version None)
Quarter: 2011Q1

REPORT INFORMATION
  Report Type: 
  Country: None (occurrence: None)
  Receive Date: 20110324
  Receipt Date: 20110322
  Transmission Date: 20110831
  Serious: Yes (Other)
  Sender: FDA-Public Use
  Company Number: JP-PFIZER INC-2011063563

PATIENT
  Age: 72 Year
  Sex: Male

DRUGS (4)
  1. LIPITOR [Suspect]
     Dosage: 10 MG, 1X/DAY
     Route: 048
     Dates: start: 20110121, end: 20110211
  2. ASPIRIN [Concomitant]
     Dosage: 200 MG, 1X/DAY
     Route: 048
  3. CONIEL [Concomitant]
     Dosage: 4 MG, 1X/DAY
     Route: 048
  4. PLAVIX [Concomitant]
     Dosage: 75 MG, 1X/DAY
     Route: 048

REACTIONS (3)
  - HYPOAESTHESIA [None]
  - DYSGEUSIA [None]
  - ATAXIA [None]
